FAERS Safety Report 5872411-9 (Version None)
Quarter: 2008Q3

REPORT INFORMATION
  Report Type: 
  Country: None (occurrence: None)
  Receive Date: 20080905
  Receipt Date: 20080825
  Transmission Date: 20090109
  Serious: Yes (Other)
  Sender: FDA-Public Use
  Company Number: US-WYE-H05706608

PATIENT

DRUGS (1)
  1. EFFEXOR XR [Suspect]
     Dosage: UNKNOWN
     Route: 064

REACTIONS (3)
  - DRUG EXPOSURE DURING PREGNANCY [None]
  - HYPOREFLEXIA [None]
  - HYPOTONIA NEONATAL [None]
